FAERS Safety Report 12353556 (Version 1)
Quarter: 2016Q2

REPORT INFORMATION
  Report Type: Spontaneous
  Country: CA (occurrence: CA)
  Receive Date: 20160511
  Receipt Date: 20160511
  Transmission Date: 20160815
  Serious: Yes (Hospitalization)
  Sender: FDA-Public Use
  Company Number: CA-HOSPIRA-3275699

PATIENT
  Age: 65 Year
  Sex: Male

DRUGS (4)
  1. LEUCOVORIN                         /00566701/ [Suspect]
     Active Substance: LEUCOVORIN
     Indication: RECTAL ADENOCARCINOMA
     Dosage: EIGHT CYCLES
     Route: 042
  2. CAPECITABINE. [Concomitant]
     Active Substance: CAPECITABINE
     Indication: RECTAL ADENOCARCINOMA
     Route: 048
  3. FLUOROURACIL. [Suspect]
     Active Substance: FLUOROURACIL
     Indication: RECTAL ADENOCARCINOMA
     Dosage: EIGHT CYCLES
     Route: 042
  4. OXALIPLATIN. [Suspect]
     Active Substance: OXALIPLATIN
     Indication: RECTAL ADENOCARCINOMA
     Dosage: EIGHT CYCLES
     Route: 042

REACTIONS (1)
  - Myositis [Recovering/Resolving]
